FAERS Safety Report 11364019 (Version 1)
Quarter: 2015Q3

REPORT INFORMATION
  Report Type: Spontaneous
  Country: JP (occurrence: JP)
  Receive Date: 20150811
  Receipt Date: 20150811
  Transmission Date: 20151125
  Serious: Yes (Other)
  Sender: FDA-Public Use
  Company Number: JP-APOTEX-2015AP011214

PATIENT

DRUGS (1)
  1. PAXIL [Suspect]
     Active Substance: PAROXETINE HYDROCHLORIDE
     Indication: DEPRESSED MOOD
     Route: 048

REACTIONS (7)
  - Catecholamines urine increased [Not Recovered/Not Resolved]
  - Metanephrine urine increased [Not Recovered/Not Resolved]
  - Malaise [Not Recovered/Not Resolved]
  - Phaeochromocytoma [Not Recovered/Not Resolved]
  - Blood pressure increased [Not Recovered/Not Resolved]
  - Cardiac failure [Not Recovered/Not Resolved]
  - Blood catecholamines increased [Not Recovered/Not Resolved]
